FAERS Safety Report 8897139 (Version 1)
Quarter: 2012Q4

REPORT INFORMATION
  Report Type: 
  Country: US (occurrence: US)
  Receive Date: 20121108
  Receipt Date: 20121108
  Transmission Date: 20130627
  Serious: No
  Sender: FDA-Public Use
  Company Number: US-AMGEN-USASP2012026822

PATIENT
  Age: 53 Year
  Sex: Male
  Weight: 65.76 kg

DRUGS (8)
  1. ENBREL [Suspect]
     Indication: RHEUMATOID ARTHRITIS
     Dosage: 50 mg, qwk
     Route: 058
  2. LISINOPRIL [Concomitant]
     Dosage: 5 mg, UNK
     Route: 048
  3. HYDROXYCHLOROQUINE [Concomitant]
     Dosage: 200 mg, UNK
     Route: 048
  4. PREDNISONE [Concomitant]
     Dosage: 10 mg, UNK
     Route: 048
  5. ALEVE [Concomitant]
     Dosage: 220 mg, UNK
     Route: 048
  6. TYLENOL /00020001/ [Concomitant]
     Dosage: 325 mg, UNK
     Route: 048
  7. VITAMIN A /00056001/ [Concomitant]
     Route: 048
  8. SULFASALAZIN [Concomitant]
     Dosage: 500 mg, UNK
     Route: 048

REACTIONS (3)
  - Ocular hyperaemia [Unknown]
  - Eye pruritus [Unknown]
  - Pruritus [Unknown]
